FAERS Safety Report 8842308 (Version 3)
Quarter: 2020Q3

REPORT INFORMATION
  Report Type: Report from Study
  Country: NZ (occurrence: NZ)
  Receive Date: 20121016
  Receipt Date: 20130219
  Transmission Date: 20201105
  Serious: Yes (Hospitalization)
  Sender: FDA-Public Use
  Company Number: NZ-009507513-1206USA02515

PATIENT
  Age: 56 Year
  Sex: Female
  Weight: 65 kg

DRUGS (48)
  1. VANIPREVIR. [Suspect]
     Active Substance: VANIPREVIR
     Dosage: 2 DF, QAM
     Route: 048
     Dates: start: 20110705, end: 20110711
  2. RIBAVIRIN. [Suspect]
     Active Substance: RIBAVIRIN
     Indication: CHRONIC HEPATITIS C
     Dosage: 3 DF, QAM
     Route: 048
     Dates: start: 20110525, end: 20120703
  3. RIBAVIRIN. [Suspect]
     Active Substance: RIBAVIRIN
     Dosage: 2 DF, QAM
     Route: 048
     Dates: start: 20110820, end: 20110827
  4. RIBAVIRIN. [Suspect]
     Active Substance: RIBAVIRIN
     Dosage: 3 DF, QAM
     Route: 048
     Dates: start: 20110924, end: 20111012
  5. RIBAVIRIN. [Suspect]
     Active Substance: RIBAVIRIN
     Dosage: 2 DF, QPM
     Route: 048
     Dates: start: 20120424, end: 20120425
  6. ALBUTEROL. [Concomitant]
     Active Substance: ALBUTEROL
     Indication: ASTHMA
     Dosage: UNK UNK, PRN
     Route: 055
     Dates: start: 19830101
  7. MOVICOL [Concomitant]
     Active Substance: POLYETHYLENE GLYCOL 3350\POTASSIUM CHLORIDE\SODIUM BICARBONATE\SODIUM CHLORIDE
     Indication: CONSTIPATION
     Dosage: 1 DF, PRN
     Route: 048
     Dates: start: 20110104, end: 20120710
  8. RIBAVIRIN. [Suspect]
     Active Substance: RIBAVIRIN
     Dosage: 2 DF, QPM
     Route: 048
     Dates: start: 20110525, end: 20120617
  9. RIBAVIRIN. [Suspect]
     Active Substance: RIBAVIRIN
     Dosage: 3 DF, QAM
     Route: 048
     Dates: start: 20110705, end: 20110711
  10. RIBAVIRIN. [Suspect]
     Active Substance: RIBAVIRIN
     Dosage: 3 DF, QAM
     Route: 048
     Dates: start: 20110814, end: 20110819
  11. RIBAVIRIN. [Suspect]
     Active Substance: RIBAVIRIN
     Dosage: 2 DF, QAM
     Route: 048
     Dates: start: 20120112, end: 20120120
  12. RIBAVIRIN. [Suspect]
     Active Substance: RIBAVIRIN
     Dosage: 3 DF, QAM
     Route: 048
     Dates: start: 20120328, end: 20120329
  13. METHADONE HYDROCHLORIDE. [Concomitant]
     Active Substance: METHADONE HYDROCHLORIDE
     Indication: ROUTINE HEALTH MAINTENANCE
     Dosage: 80 MG, QD
     Route: 048
     Dates: start: 20020101
  14. PEGINTERFERON ALFA?2A. [Suspect]
     Active Substance: PEGINTERFERON ALFA-2A
     Dosage: 180 MICROGRAM, QW
     Route: 058
     Dates: start: 20110909, end: 20111223
  15. PEGINTERFERON ALFA?2A. [Suspect]
     Active Substance: PEGINTERFERON ALFA-2A
     Dosage: 180 MICROGRAM, QW
     Route: 058
     Dates: start: 20120330, end: 20120420
  16. VANIPREVIR. [Suspect]
     Active Substance: VANIPREVIR
     Indication: CHRONIC HEPATITIS C
     Dosage: 2 DF, QAM
     Route: 048
     Dates: start: 20110525, end: 20110703
  17. VANIPREVIR. [Suspect]
     Active Substance: VANIPREVIR
     Dosage: 2 DF, QPM
     Route: 048
     Dates: start: 20110619, end: 20111213
  18. VANIPREVIR. [Suspect]
     Active Substance: VANIPREVIR
     Dosage: 2 DF, QPM
     Dates: start: 20111215, end: 20120422
  19. RIBAVIRIN. [Suspect]
     Active Substance: RIBAVIRIN
     Dosage: 2 DF, QPM
     Route: 048
     Dates: start: 20110619, end: 20111108
  20. RIBAVIRIN. [Suspect]
     Active Substance: RIBAVIRIN
     Dosage: 3 DF, QAM
     Route: 048
     Dates: start: 20110828, end: 20110909
  21. RIBAVIRIN. [Suspect]
     Active Substance: RIBAVIRIN
     Dosage: 2 DF, QPM
     Route: 048
     Dates: start: 20111110, end: 20111213
  22. RIBAVIRIN. [Suspect]
     Active Substance: RIBAVIRIN
     Dosage: 2 DF, QAM
     Route: 048
     Dates: start: 20120229, end: 20120309
  23. RIBAVIRIN. [Suspect]
     Active Substance: RIBAVIRIN
     Dosage: 2 DF, QPM
     Route: 048
     Dates: start: 20111215, end: 20120422
  24. RIBAVIRIN. [Suspect]
     Active Substance: RIBAVIRIN
     Dosage: 2 DF, QAM
     Route: 048
     Dates: start: 20120202, end: 20120228
  25. VANIPREVIR. [Suspect]
     Active Substance: VANIPREVIR
     Dosage: 2 DF, QPM
     Route: 048
     Dates: start: 20120424, end: 20120425
  26. PEGINTERFERON ALFA?2A. [Suspect]
     Active Substance: PEGINTERFERON ALFA-2A
     Indication: CHRONIC HEPATITIS C
     Dosage: 180 MICROGRAM, QW
     Route: 058
     Dates: start: 20110525, end: 20110819
  27. PEGINTERFERON ALFA?2A. [Suspect]
     Active Substance: PEGINTERFERON ALFA-2A
     Dosage: 180 MICROGRAM, QW
     Route: 058
     Dates: start: 20120106, end: 20120316
  28. RIBAVIRIN. [Suspect]
     Active Substance: RIBAVIRIN
     Dosage: 2 DF, QAM
     Route: 048
     Dates: start: 20110910, end: 20110923
  29. RIBAVIRIN. [Suspect]
     Active Substance: RIBAVIRIN
     Dosage: 2 DF, QAM
     Route: 048
     Dates: start: 20111013, end: 20111023
  30. RIBAVIRIN. [Suspect]
     Active Substance: RIBAVIRIN
     Dosage: 3 DF, QAM
     Route: 048
     Dates: start: 20120417, end: 20120425
  31. OMEPRAZOLE. [Concomitant]
     Active Substance: OMEPRAZOLE
     Indication: GASTROOESOPHAGEAL REFLUX DISEASE
     Dosage: 40 MG, PRN
     Route: 048
     Dates: start: 19860101
  32. VANIPREVIR. [Suspect]
     Active Substance: VANIPREVIR
     Dosage: 2 DF, QAM
     Route: 048
     Dates: start: 20110713, end: 20120425
  33. RIBAVIRIN. [Suspect]
     Active Substance: RIBAVIRIN
     Dosage: 2 DF, QAM
     Route: 048
     Dates: start: 20110720, end: 20110813
  34. RIBAVIRIN. [Suspect]
     Active Substance: RIBAVIRIN
     Dosage: 1 DF, QPM
     Route: 048
     Dates: start: 20111109, end: 20111109
  35. RIBAVIRIN. [Suspect]
     Active Substance: RIBAVIRIN
     Dosage: 3 DF, QAM
     Route: 048
     Dates: start: 20111207, end: 20120111
  36. RIBAVIRIN. [Suspect]
     Active Substance: RIBAVIRIN
     Dosage: 3 DF, QAM
     Route: 048
     Dates: start: 20120121, end: 20120131
  37. RIBAVIRIN. [Suspect]
     Active Substance: RIBAVIRIN
     Dosage: 3 DF, QAM
     Route: 048
     Dates: start: 20120201, end: 20120201
  38. RIBAVIRIN. [Suspect]
     Active Substance: RIBAVIRIN
     Dosage: 3 DF, QAM
     Route: 048
     Dates: start: 20120310, end: 20120327
  39. SYMBICORT [Concomitant]
     Active Substance: BUDESONIDE\FORMOTEROL FUMARATE DIHYDRATE
     Indication: ASTHMA
     Dosage: 2 DF, BID
     Route: 055
     Dates: start: 20050101
  40. ACETAMINOPHEN. [Concomitant]
     Active Substance: ACETAMINOPHEN
     Indication: HEADACHE
     Dosage: UNK UNK, PRN
     Route: 048
     Dates: start: 20100101
  41. ACETAMINOPHEN. [Concomitant]
     Active Substance: ACETAMINOPHEN
     Indication: PROPHYLAXIS
  42. VANIPREVIR. [Suspect]
     Active Substance: VANIPREVIR
     Dosage: 2 DF, QPM
     Route: 048
     Dates: start: 20110525, end: 20110617
  43. RIBAVIRIN. [Suspect]
     Active Substance: RIBAVIRIN
     Dosage: 3 DF, QAM
     Route: 048
     Dates: start: 20110713, end: 20110719
  44. RIBAVIRIN. [Suspect]
     Active Substance: RIBAVIRIN
     Dosage: 3 DF, QAM
     Route: 048
     Dates: start: 20111024, end: 20111109
  45. RIBAVIRIN. [Suspect]
     Active Substance: RIBAVIRIN
     Dosage: 2 DF, QAM
     Route: 048
     Dates: start: 20111110, end: 20111206
  46. RIBAVIRIN. [Suspect]
     Active Substance: RIBAVIRIN
     Dosage: 2 DF, QAM
     Route: 048
     Dates: start: 20120330, end: 20120416
  47. RIBAVIRIN. [Suspect]
     Active Substance: RIBAVIRIN
     Dosage: UNK
  48. TRIAZOLAM. [Concomitant]
     Active Substance: TRIAZOLAM
     Indication: INSOMNIA
     Dosage: UNK UNK, PRN
     Route: 048
     Dates: start: 20020101

REACTIONS (1)
  - Constipation [Recovered/Resolved]

NARRATIVE: CASE EVENT DATE: 20120610
